FAERS Safety Report 7568814-7 (Version None)
Quarter: 2011Q2

REPORT INFORMATION
  Report Type: 
  Country: None (occurrence: None)
  Receive Date: 20110623
  Receipt Date: 20110620
  Transmission Date: 20111010
  Serious: Yes (Other)
  Sender: FDA-Public Use
  Company Number: BR-PFIZER INC-2011136763

PATIENT
  Age: 55 Year
  Sex: Female
  Weight: 68 kg

DRUGS (6)
  1. TEGRETOL [Concomitant]
     Dosage: UNK
  2. WARFARIN SODIUM [Concomitant]
     Indication: DEEP VEIN THROMBOSIS
     Dosage: UNK
  3. FLUOXETINE [Concomitant]
     Indication: DEPRESSION
     Dosage: UNK
  4. VARENICLINE TARTRATE [Suspect]
     Indication: SMOKING CESSATION THERAPY
     Dosage: 0.5 MG, 1X/DAY
     Route: 048
     Dates: start: 20110610, end: 20110601
  5. BUPROPION [Concomitant]
     Dosage: UNK
  6. LEVOTHYROXINE SODIUM [Concomitant]
     Indication: HYPOTHYROIDISM
     Dosage: UNK

REACTIONS (4)
  - SUICIDE ATTEMPT [None]
  - ANXIETY [None]
  - URINARY INCONTINENCE [None]
  - DEPRESSION [None]
